FAERS Safety Report 23725533 (Version 1)
Quarter: 2024Q2

REPORT INFORMATION
  Report Type: Spontaneous
  Country: US (occurrence: US)
  Receive Date: 20240410
  Receipt Date: 20240410
  Transmission Date: 20240716
  Serious: No
  Sender: FDA-Public Use
  Company Number: US-UNITED THERAPEUTICS-UNT-2023-035620

PATIENT
  Sex: Male

DRUGS (5)
  1. TYVASO [Suspect]
     Active Substance: TREPROSTINIL
     Indication: Pulmonary arterial hypertension
     Dosage: 54 ?G, QID
     Dates: start: 2023
  2. TYVASO [Suspect]
     Active Substance: TREPROSTINIL
     Dosage: UNK
     Dates: start: 202307
  3. OFEV [Concomitant]
     Active Substance: NINTEDANIB
     Indication: Idiopathic pulmonary fibrosis
     Dosage: 150 MG, QD (1 EVERY 1 DAY)
     Route: 048
     Dates: start: 202303
  4. OFEV [Concomitant]
     Active Substance: NINTEDANIB
     Dosage: 150 MG, BID (1 EVERY 12 HOUR)
     Route: 048
     Dates: start: 20230301
  5. OFEV [Concomitant]
     Active Substance: NINTEDANIB
     Dosage: 100 MG, BID (1 EVERY 12 HOUR)
     Route: 048

REACTIONS (2)
  - Oxygen consumption increased [Unknown]
  - Condition aggravated [Unknown]

NARRATIVE: CASE EVENT DATE: 20230101
